FAERS Safety Report 7542636-5 (Version None)
Quarter: 2011Q2

REPORT INFORMATION
  Report Type: 
  Country: None (occurrence: None)
  Receive Date: 20110613
  Receipt Date: 20110607
  Transmission Date: 20111010
  Serious: Yes (Hospitalization, Other)
  Sender: FDA-Public Use
  Company Number: FR-SANOFI-AVENTIS-2011SA031378

PATIENT
  Age: 86 Year
  Sex: Female

DRUGS (10)
  1. OMEPRAZOLE [Suspect]
     Route: 048
     Dates: start: 20080101
  2. CORDARONE [Suspect]
     Route: 048
  3. DICLOFENAC RESINATE [Suspect]
  4. INDAPAMIDE [Suspect]
     Route: 048
  5. HALDOL [Suspect]
     Indication: DELIRIUM
     Route: 048
     Dates: start: 20110331
  6. ASPIRIN [Suspect]
     Route: 048
  7. ACETAMINOPHEN [Suspect]
     Route: 048
  8. LASIX [Suspect]
     Route: 048
  9. IMOVANE [Suspect]
     Route: 048
  10. DETENSIEL [Suspect]
     Route: 048

REACTIONS (9)
  - IMPAIRED SELF-CARE [None]
  - MENTAL DISORDER DUE TO A GENERAL MEDICAL CONDITION [None]
  - FEMUR FRACTURE [None]
  - PYELONEPHRITIS ACUTE [None]
  - ARTHRITIS [None]
  - DEHYDRATION [None]
  - URINARY RETENTION [None]
  - FALL [None]
  - HYPERTENSION [None]
